FAERS Safety Report 18530233 (Version 2)
Quarter: 2020Q4

REPORT INFORMATION
  Report Type: Other
  Country: IN (occurrence: IN)
  Receive Date: 20201121
  Receipt Date: 20201224
  Transmission Date: 20210114
  Serious: Yes (Other)
  Sender: FDA-Public Use
  Company Number: IN-ROCHE-2717325

PATIENT
  Age: 67 Year
  Sex: Male

DRUGS (3)
  1. RANIBIZUMAB. [Suspect]
     Active Substance: RANIBIZUMAB
     Indication: MACULAR OEDEMA
     Dosage: UNK (5MG/0.05ML)
     Route: 031
  2. RANIBIZUMAB. [Suspect]
     Active Substance: RANIBIZUMAB
     Dosage: UNK (THIRD INTRAVITREAL RBZ)
     Route: 031
  3. RANIBIZUMAB. [Suspect]
     Active Substance: RANIBIZUMAB
     Dosage: UNK (SECOND INTRAVITREAL RBZ)
     Route: 031

REACTIONS (1)
  - Macular hole [Recovered/Resolved]
